FAERS Safety Report 9177829 (Version 2)
Quarter: 2013Q2

REPORT INFORMATION
  Report Type: Spontaneous
  Country: US (occurrence: US)
  Receive Date: 20121010
  Receipt Date: 20130417
  Transmission Date: 20140414
  Serious: Yes (Other)
  Sender: FDA-Public Use
  Company Number: US-RB-045704-12

PATIENT
  Age: 0 Year
  Sex: Male

DRUGS (7)
  1. SUBOXONE TABLET [Suspect]
     Indication: DRUG DEPENDENCE
     Dosage: DOSING DETAILS UNKNOWN
     Route: 064
     Dates: start: 20051215, end: 2006
  2. SUBOXONE TABLET [Suspect]
     Indication: PAIN
     Dosage: DOSING DETAILS UNKNOWN
     Route: 064
     Dates: start: 20051215, end: 2006
  3. SUBUTEX [Suspect]
     Indication: DRUG DEPENDENCE
     Route: 064
     Dates: start: 2006, end: 20060904
  4. SUBUTEX [Suspect]
     Indication: PAIN
     Route: 064
     Dates: start: 2006, end: 20060904
  5. PROZAC [Suspect]
     Indication: DEPRESSION
     Route: 064
     Dates: start: 20060701, end: 2006
  6. TRAZODONE [Suspect]
     Indication: PRODUCT USED FOR UNKNOWN INDICATION
     Route: 064
     Dates: start: 20060101, end: 2006
  7. INDERAL [Suspect]
     Indication: ANXIETY
     Route: 064
     Dates: start: 20060101, end: 2006

REACTIONS (2)
  - Foetal exposure during pregnancy [Recovered/Resolved]
  - Low birth weight baby [Recovered/Resolved]
